FAERS Safety Report 9708115 (Version 1)
Quarter: 2013Q4

REPORT INFORMATION
  Report Type: Spontaneous
  Country: CA (occurrence: None)
  Receive Date: 20131121
  Receipt Date: 20131121
  Transmission Date: 20140711
  Serious: Yes (Hospitalization)
  Sender: FDA-Public Use
  Company Number: FK201304978

PATIENT
  Age: 3 Year
  Sex: Female
  Weight: 13 kg

DRUGS (11)
  1. VANCOMYCIN (MANUFACTURER UNKNOWN) (VANCOMYCIN) (VANCOMYCIN) [Suspect]
     Indication: PRODUCT USED FOR UNKNOWN INDICATION
     Dosage: UNKNOWN, UNKNOWN, INTRAPERITONEAL
     Route: 033
  2. ARANESP (DARBEPOETIN ALFA) [Concomitant]
  3. CEFAZOLIN (CEFAZOLIN) [Concomitant]
  4. CEFTAZIDIME (CEFTAZIDIME) [Concomitant]
  5. IRON (IRON) [Concomitant]
  6. NYSTATIN (NYSTATIN) [Concomitant]
  7. ONE-ALPHA (ALFACALCIDOL) [Concomitant]
  8. PRAVASTATIN SODIUM (PARAVASTATIN SODIUM) [Concomitant]
  9. RESTORALAX (MACROGOL 3350) [Concomitant]
  10. TUMS (TUMS) [Concomitant]
  11. VITAMIN D [Concomitant]

REACTIONS (3)
  - Swelling face [None]
  - Dyspnoea [None]
  - Urticaria [None]
